FAERS Safety Report 24332890 (Version 1)
Quarter: 2024Q3

REPORT INFORMATION
  Report Type: Spontaneous
  Country: US (occurrence: US)
  Receive Date: 20240918
  Receipt Date: 20240918
  Transmission Date: 20241016
  Serious: No
  Sender: ASTELLAS
  Company Number: US-ASTELLAS-2024-AER-005494

PATIENT
  Age: 41 Year
  Sex: Female

DRUGS (1)
  1. VEOZAH [Suspect]
     Active Substance: FEZOLINETANT
     Indication: Hot flush
     Route: 065
     Dates: start: 2024, end: 202408

REACTIONS (2)
  - Rash [Recovered/Resolved]
  - Periorbital swelling [Recovered/Resolved]

NARRATIVE: CASE EVENT DATE: 20240101
